FAERS Safety Report 11071889 (Version 2)
Quarter: 2015Q2

REPORT INFORMATION
  Report Type: Spontaneous
  Country: US (occurrence: US)
  Receive Date: 20150428
  Receipt Date: 20150527
  Transmission Date: 20150821
  Serious: No
  Sender: FDA-Public Use
  Company Number: US-ASTRAZENECA-2015SE37301

PATIENT
  Age: 80 Year
  Sex: Female
  Weight: 81.6 kg

DRUGS (4)
  1. ALBUTEROL. [Concomitant]
     Active Substance: ALBUTEROL
  2. TUSSINEX [Concomitant]
     Indication: UPPER-AIRWAY COUGH SYNDROME
  3. SYMBICORT [Suspect]
     Active Substance: BUDESONIDE\FORMOTEROL FUMARATE DIHYDRATE
     Indication: ASTHMA
     Dosage: 160/4.5 MCG, UNKNOWN
     Route: 055
     Dates: start: 20150127
  4. NASAL SPRAY [Concomitant]
     Active Substance: UNSPECIFIED INGREDIENT
     Indication: UPPER-AIRWAY COUGH SYNDROME

REACTIONS (5)
  - Upper-airway cough syndrome [Unknown]
  - Drug dose omission [Unknown]
  - Malaise [Unknown]
  - Intentional product misuse [Unknown]
  - Throat irritation [Unknown]

NARRATIVE: CASE EVENT DATE: 2015
